FAERS Safety Report 9202708 (Version 2)
Quarter: 2013Q4

REPORT INFORMATION
  Report Type: Spontaneous
  Country: US (occurrence: US)
  Receive Date: 20130401
  Receipt Date: 20131230
  Transmission Date: 20140711
  Serious: Yes (Other)
  Sender: FDA-Public Use
  Company Number: US-BAYER-2013-039218

PATIENT
  Age: 20 Year
  Sex: Female

DRUGS (9)
  1. YAZ [Suspect]
     Dosage: UNK
     Dates: start: 200606, end: 200609
  2. YASMIN [Suspect]
     Dosage: UNK
     Dates: start: 200606, end: 200609
  3. OCELLA [Suspect]
     Dosage: UNK
     Dates: start: 200606, end: 200609
  4. GIANVI [Suspect]
     Dosage: UNK
     Dates: start: 200606, end: 200609
  5. AMBIEN [Concomitant]
     Indication: SLEEP DISORDER
     Dosage: ONE AT NIGHT IF NEEDED
     Route: 048
     Dates: start: 20071025
  6. TYLOX [Concomitant]
     Indication: PAIN
     Dosage: UNK
     Route: 048
     Dates: start: 20071025
  7. PHENERGAN [Concomitant]
  8. VICOPROFEN [Concomitant]
  9. LEVORA-28 [Concomitant]

REACTIONS (6)
  - Cholecystitis chronic [None]
  - Cholecystectomy [None]
  - Pain [None]
  - Injury [None]
  - Anxiety [None]
  - Anhedonia [None]
